FAERS Safety Report 4647264-7 (Version None)
Quarter: 2005Q2

REPORT INFORMATION
  Report Type: 
  Country: None (occurrence: None)
  Receive Date: 20050428
  Receipt Date: 20050422
  Transmission Date: 20051028
  Serious: Yes (Hospitalization)
  Sender: FDA-Public Use
  Company Number: 200511071EU

PATIENT
  Age: 73 Year
  Sex: Male

DRUGS (8)
  1. LASIX [Suspect]
     Route: 048
     Dates: end: 20041020
  2. XATRAL [Suspect]
     Route: 048
     Dates: end: 20041020
  3. LOPRESSOR [Suspect]
     Route: 048
     Dates: end: 20041020
  4. ISOPTIN [Suspect]
     Route: 048
     Dates: end: 20041020
  5. FLUOXETINE [Suspect]
     Route: 048
     Dates: end: 20041020
  6. ZYLORIC [Concomitant]
     Route: 048
     Dates: end: 20041020
  7. SINTROM [Concomitant]
     Route: 048
  8. SEROPRAM [Concomitant]
     Route: 048
     Dates: end: 20041020

REACTIONS (5)
  - BRADYCARDIA [None]
  - CARDIOMEGALY [None]
  - COLD SWEAT [None]
  - HYPOTENSION [None]
  - SYNCOPE [None]
